FAERS Safety Report 14578221 (Version 1)
Quarter: 2018Q1

REPORT INFORMATION
  Report Type: Spontaneous
  Country: US (occurrence: US)
  Receive Date: 20180226
  Receipt Date: 20180226
  Transmission Date: 20180509
  Serious: No
  Sender: FDA-Public Use
  Company Number: None

PATIENT
  Age: 49 Year
  Sex: Female

DRUGS (2)
  1. METHOTREXATE. [Concomitant]
     Active Substance: METHOTREXATE
  2. ORENCIA [Suspect]
     Active Substance: ABATACEPT

REACTIONS (1)
  - Nausea [None]

NARRATIVE: CASE EVENT DATE: 20180226
